FAERS Safety Report 4684761-2 (Version None)
Quarter: 2005Q2

REPORT INFORMATION
  Report Type: 
  Country: None (occurrence: None)
  Receive Date: 20050531
  Receipt Date: 20050414
  Transmission Date: 20051028
  Serious: Yes (Hospitalization, Other)
  Sender: FDA-Public Use
  Company Number: USA050187470

PATIENT
  Age: 28 Year
  Sex: Male
  Weight: 95 kg

DRUGS (10)
  1. ZYPREXA [Suspect]
     Indication: SCHIZOAFFECTIVE DISORDER
     Dosage: 40 MG
     Dates: start: 20030922, end: 20041214
  2. KLONOPIN [Concomitant]
  3. NEURONTIN (GABAPENTIN PFIZER) [Concomitant]
  4. LITHIUM [Concomitant]
  5. AMBIEN [Concomitant]
  6. DIPHENHYDRAMINE HCL [Concomitant]
  7. EFFEXOR [Concomitant]
  8. HALDOL (HALOPERIDOL DECANOATE) [Concomitant]
  9. DEPAKOTE [Concomitant]
  10. AMANTADINE [Concomitant]

REACTIONS (6)
  - BLOOD TRIGLYCERIDES INCREASED [None]
  - DIABETES MELLITUS NON-INSULIN-DEPENDENT [None]
  - DIABETIC KETOACIDOSIS [None]
  - HYPOTHYROIDISM [None]
  - PRESCRIBED OVERDOSE [None]
  - WEIGHT INCREASED [None]
